FAERS Safety Report 4902337-6 (Version None)
Quarter: 2006Q1

REPORT INFORMATION
  Report Type: 
  Country: None (occurrence: None)
  Receive Date: 20060203
  Receipt Date: 20060203
  Transmission Date: 20060701
  Serious: Yes (Hospitalization)
  Sender: FDA-Public Use
  Company Number: None

PATIENT
  Age: 66 Year
  Sex: Female
  Weight: 70.5 kg

DRUGS (20)
  1. ALIMTA [Suspect]
     Indication: LEIOMYOSARCOMA METASTATIC
     Dosage: 300MG/M2 / Q 2 WK / IV PORT
     Route: 042
     Dates: start: 20060112
  2. TAXOTERE [Suspect]
     Dosage: 25 MG/M2  / Q 2 WK / IV PORT
     Route: 042
     Dates: start: 20060112
  3. NS [Concomitant]
  4. ARANCAP [Concomitant]
  5. FUROSEMIDE [Concomitant]
  6. HEPARIN [Concomitant]
  7. METAPROLOL [Concomitant]
  8. ZOLPIDEM [Concomitant]
  9. POTASSIUM CHLORIDE [Concomitant]
  10. D5 1/2 NS 20 KCL 100/ML/HR [Concomitant]
  11. MOXIFLOXACIN HCL [Concomitant]
  12. FOLIC ACID [Concomitant]
  13. FUROSEMIDE [Concomitant]
  14. SLIDING SCALE INSULIN [Concomitant]
  15. SOLU-MEDROL [Concomitant]
  16. DUCOLAX [Concomitant]
  17. HEPARIN [Concomitant]
  18. PEPCID [Concomitant]
  19. VERSED [Concomitant]
  20. FENTANLY [Concomitant]

REACTIONS (6)
  - COMPUTERISED TOMOGRAM ABNORMAL [None]
  - DEHYDRATION [None]
  - HYPOXIA [None]
  - INFLAMMATION [None]
  - LUNG DISORDER [None]
  - RENAL FAILURE ACUTE [None]
